FAERS Safety Report 23226183 (Version 2)
Quarter: 2023Q4

REPORT INFORMATION
  Report Type: Spontaneous
  Country: CN (occurrence: None)
  Receive Date: 20231124
  Receipt Date: 20231130
  Transmission Date: 20240110
  Serious: Yes (Other)
  Sender: FDA-Public Use
  Company Number: 2023A264378

PATIENT

DRUGS (1)
  1. IMFINZI [Suspect]
     Active Substance: DURVALUMAB

REACTIONS (4)
  - Gait disturbance [Unknown]
  - Metastases to central nervous system [Unknown]
  - Speech disorder [Unknown]
  - General physical health deterioration [Unknown]
